FAERS Safety Report 4546370-5 (Version None)
Quarter: 2005Q1

REPORT INFORMATION
  Report Type: 
  Country: None (occurrence: None)
  Receive Date: 20050103
  Receipt Date: 20041223
  Transmission Date: 20050727
  Serious: Yes (Other)
  Sender: FDA-Public Use
  Company Number: 2004119642

PATIENT
  Age: 36 Year
  Sex: Female

DRUGS (3)
  1. ATARAX [Suspect]
     Indication: ILL-DEFINED DISORDER
     Route: 048
  2. ZOLOFT [Suspect]
     Indication: ILL-DEFINED DISORDER
  3. QUETIAPINE FUMARATE              (QUETIAPINE FUMARATE) [Suspect]
     Indication: ILL-DEFINED DISORDER

REACTIONS (4)
  - COMA [None]
  - CONVULSION [None]
  - SUICIDE ATTEMPT [None]
  - TACHYCARDIA [None]
